FAERS Safety Report 13118916 (Version 2)
Quarter: 2017Q1

REPORT INFORMATION
  Report Type: Spontaneous
  Country: FI (occurrence: FI)
  Receive Date: 20170116
  Receipt Date: 20170205
  Transmission Date: 20170428
  Serious: Yes (Hospitalization, Other)
  Sender: FDA-Public Use
  Company Number: FI-ABBVIE-17K-055-1832778-00

PATIENT
  Age: 15 Year
  Sex: Female
  Weight: 43 kg

DRUGS (6)
  1. HUMIRA [Suspect]
     Active Substance: ADALIMUMAB
     Indication: JUVENILE IDIOPATHIC ARTHRITIS
     Route: 058
     Dates: start: 200912, end: 201012
  2. SULFASALAZINE. [Suspect]
     Active Substance: SULFASALAZINE
     Indication: PRODUCT USED FOR UNKNOWN INDICATION
     Route: 065
     Dates: start: 1999
  3. SULFASALAZINE. [Suspect]
     Active Substance: SULFASALAZINE
     Route: 065
     Dates: start: 2008
  4. AZATHIOPRINE. [Suspect]
     Active Substance: AZATHIOPRINE
     Indication: PRODUCT USED FOR UNKNOWN INDICATION
     Route: 065
     Dates: start: 2008, end: 2010
  5. HUMIRA [Suspect]
     Active Substance: ADALIMUMAB
     Indication: JUVENILE IDIOPATHIC ARTHRITIS
     Route: 058
     Dates: start: 201012, end: 2012
  6. HUMIRA [Suspect]
     Active Substance: ADALIMUMAB
     Route: 058
     Dates: start: 2012, end: 20120313

REACTIONS (39)
  - Fatigue [Unknown]
  - Proctitis [Unknown]
  - Hypoaesthesia [Unknown]
  - Syncope [Unknown]
  - Impaired healing [Unknown]
  - Female sexual dysfunction [Unknown]
  - Colitis [Recovered/Resolved]
  - Abdominal pain upper [Recovered/Resolved]
  - Colitis [Recovered/Resolved]
  - Asthenia [Unknown]
  - Frequent bowel movements [Unknown]
  - Arthropathy [Unknown]
  - Insomnia [Unknown]
  - Gastrointestinal motility disorder [Unknown]
  - Appendicitis [Unknown]
  - Musculoskeletal stiffness [Unknown]
  - Muscle spasms [Unknown]
  - Sinusitis [Unknown]
  - Colitis [Recovered/Resolved]
  - Arthropathy [Unknown]
  - Arthropathy [Unknown]
  - Arthropathy [Unknown]
  - Demyelination [Unknown]
  - Drug effect decreased [Unknown]
  - Pain in extremity [Unknown]
  - Abnormal faeces [Unknown]
  - Red blood cell sedimentation rate increased [Recovered/Resolved]
  - Abdominal pain upper [Unknown]
  - Inflammatory bowel disease [Unknown]
  - Vision blurred [Unknown]
  - Gait disturbance [Unknown]
  - Drug ineffective [Unknown]
  - Fear of injection [Unknown]
  - Lymphadenitis [Unknown]
  - Faecal calprotectin increased [Unknown]
  - Diarrhoea haemorrhagic [Unknown]
  - Proctitis [Unknown]
  - Arthropathy [Unknown]
  - Haemoglobin decreased [Unknown]

NARRATIVE: CASE EVENT DATE: 20100418
